FAERS Safety Report 5132492-7 (Version None)
Quarter: 2006Q4

REPORT INFORMATION
  Report Type: 
  Country: None (occurrence: None)
  Receive Date: 20061023
  Receipt Date: 20061010
  Transmission Date: 20070319
  Serious: Yes (Other)
  Sender: FDA-Public Use
  Company Number: PHBS2006JP15837

PATIENT

DRUGS (3)
  1. PSYCHIATRIC THERAPY [Concomitant]
  2. BOUFUUTSUUSHOUSAN [Suspect]
  3. SANOREX [Suspect]
     Route: 048

REACTIONS (3)
  - CONDITION AGGRAVATED [None]
  - DRUG INTERACTION [None]
  - HALLUCINATION [None]
